FAERS Safety Report 20982378 (Version 1)
Quarter: 2022Q2

REPORT INFORMATION
  Report Type: Spontaneous
  Country: US (occurrence: US)
  Receive Date: 20220620
  Receipt Date: 20220620
  Transmission Date: 20220720
  Serious: Yes (Other)
  Sender: FDA-Public Use
  Company Number: US-PFIZER INC-202200845737

PATIENT
  Sex: Male

DRUGS (1)
  1. PROTONIX [Suspect]
     Active Substance: PANTOPRAZOLE SODIUM
     Indication: Gastrointestinal haemorrhage
     Dosage: 40 MG, DAILY (EVERY MORNING)
     Dates: start: 2022

REACTIONS (5)
  - Gastrointestinal haemorrhage [Unknown]
  - Bradycardia [Unknown]
  - Therapeutic response unexpected [Unknown]
  - Fatigue [Unknown]
  - Off label use [Unknown]
